FAERS Safety Report 25176845 (Version 1)
Quarter: 2025Q2

REPORT INFORMATION
  Report Type: Report from Study
  Country: US (occurrence: US)
  Receive Date: 20250409
  Receipt Date: 20250409
  Transmission Date: 20250716
  Serious: Yes (Other)
  Sender: ACADIA PHARMACEUTICALS
  Company Number: US-ACADIA PHARMACEUTICALS INC.-ACA-2025-PIM-003883

PATIENT
  Sex: Female

DRUGS (2)
  1. NUPLAZID [Suspect]
     Active Substance: PIMAVANSERIN TARTRATE
     Indication: Parkinson^s disease psychosis
     Dosage: 34 MILLIGRAM, QD
     Route: 048
  2. RYTARY [Suspect]
     Active Substance: CARBIDOPA\LEVODOPA
     Indication: Product used for unknown indication
     Dosage: UNK, QID (61.25 MILLIGRAMS FOUR TIMES A DAY)
     Route: 065

REACTIONS (1)
  - Hallucination [Not Recovered/Not Resolved]
